FAERS Safety Report 12593694 (Version 1)
Quarter: 2016Q3

REPORT INFORMATION
  Report Type: Spontaneous
  Country: US (occurrence: US)
  Receive Date: 20160726
  Receipt Date: 20160726
  Transmission Date: 20161109
  Serious: No
  Sender: FDA-Public Use
  Company Number: US-ABBVIE-15P-163-1438754-00

PATIENT
  Sex: Male
  Weight: 86.26 kg

DRUGS (8)
  1. LEVOTHYROXINE (GENERIC) [Suspect]
     Active Substance: LEVOTHYROXINE
     Indication: HYPOTHYROIDISM
     Route: 048
     Dates: start: 2014, end: 201410
  2. CLONAZEPAM. [Concomitant]
     Active Substance: CLONAZEPAM
     Indication: PALPITATIONS
  3. LEVOTHYROXINE. [Suspect]
     Active Substance: LEVOTHYROXINE
     Indication: HYPOTHYROIDISM
     Route: 048
     Dates: start: 2014, end: 201410
  4. CITALOPRAM [Concomitant]
     Active Substance: CITALOPRAM HYDROBROMIDE
     Indication: PRODUCT USED FOR UNKNOWN INDICATION
  5. SYNTHROID [Suspect]
     Active Substance: LEVOTHYROXINE SODIUM
     Indication: HYPOTHYROIDISM
     Dosage: TOOK A 1/2 PILL
     Route: 048
     Dates: start: 2014, end: 2014
  6. ARMOUR THYROID [Suspect]
     Active Substance: THYROID, PORCINE
     Indication: HYPOTHYROIDISM
     Route: 065
     Dates: start: 2014, end: 2014
  7. LEVOTHYROXINE. [Suspect]
     Active Substance: LEVOTHYROXINE
     Indication: HYPOTHYROIDISM
     Route: 048
     Dates: start: 2014, end: 201410
  8. PAXIL [Concomitant]
     Active Substance: PAROXETINE HYDROCHLORIDE
     Indication: PRODUCT USED FOR UNKNOWN INDICATION

REACTIONS (14)
  - Palpitations [Recovered/Resolved]
  - Emotional disorder [Recovered/Resolved]
  - Vasodilatation [Recovered/Resolved]
  - Nervousness [Recovered/Resolved]
  - Chest pain [Recovered/Resolved]
  - Middle insomnia [Recovered/Resolved]
  - Fatigue [Unknown]
  - Paralysis [Recovered/Resolved]
  - Decreased appetite [Recovered/Resolved]
  - Malaise [Unknown]
  - Feeling abnormal [Unknown]
  - Hypersomnia [Unknown]
  - Pain [Recovered/Resolved]
  - Sedation [Recovered/Resolved]

NARRATIVE: CASE EVENT DATE: 2014
